FAERS Safety Report 17522506 (Version 1)
Quarter: 2020Q1

REPORT INFORMATION
  Report Type: Spontaneous
  Country: US (occurrence: US)
  Receive Date: 20200310
  Receipt Date: 20200310
  Transmission Date: 20200409
  Serious: No
  Sender: FDA-Public Use
  Company Number: US-SHIRE-US202008982

PATIENT
  Sex: Female
  Weight: 38 kg

DRUGS (1)
  1. GATTEX [Suspect]
     Active Substance: TEDUGLUTIDE\WATER
     Indication: PRODUCT USED FOR UNKNOWN INDICATION
     Dosage: 0.19 UNK, 1X/DAY:QD
     Route: 065
     Dates: start: 20200206

REACTIONS (1)
  - Gastric disorder [Unknown]
